FAERS Safety Report 16951676 (Version 2)
Quarter: 2019Q4

REPORT INFORMATION
  Report Type: Spontaneous
  Country: US (occurrence: US)
  Receive Date: 20191023
  Receipt Date: 20191108
  Transmission Date: 20200122
  Serious: Yes (Hospitalization, Other)
  Sender: FDA-Public Use
  Company Number: US-VERTEX PHARMACEUTICALS-2019-010035

PATIENT
  Age: 26 Year
  Sex: Female

DRUGS (22)
  1. ZENPEP [Concomitant]
     Active Substance: PANCRELIPASE AMYLASE\PANCRELIPASE LIPASE\PANCRELIPASE PROTEASE
  2. ADVAIR HFA [Concomitant]
     Active Substance: FLUTICASONE PROPIONATE\SALMETEROL XINAFOATE
  3. BISACODYL. [Concomitant]
     Active Substance: BISACODYL
  4. FLONASE [MOMETASONE FUROATE] [Concomitant]
     Active Substance: MOMETASONE FUROATE
  5. SYMDEKO [Suspect]
     Active Substance: IVACAFTOR\TEZACAFTOR
     Indication: CYSTIC FIBROSIS
     Dosage: 100MG TEZACAFTOR/ 150MG IVACAFTOR; 150MG IVACAFTOR, BID
     Route: 048
     Dates: start: 20180510
  6. LORAZEPAM. [Suspect]
     Active Substance: LORAZEPAM
     Indication: PNEUMONIA
     Dosage: UNK
     Route: 065
     Dates: start: 201909, end: 201909
  7. OMEPRAZOLE. [Concomitant]
     Active Substance: OMEPRAZOLE
  8. TRULANCE [Concomitant]
     Active Substance: PLECANATIDE
  9. LINEZOLID. [Suspect]
     Active Substance: LINEZOLID
     Indication: PNEUMONIA
     Dosage: UNK
     Route: 065
     Dates: start: 20190916, end: 20190920
  10. CETRIZINE [Concomitant]
     Active Substance: CETIRIZINE HYDROCHLORIDE
  11. VITAMIN D [COLECALCIFEROL] [Concomitant]
     Active Substance: CHOLECALCIFEROL
  12. AMITIZA [Concomitant]
     Active Substance: LUBIPROSTONE
  13. HUMALOG [Concomitant]
     Active Substance: INSULIN LISPRO
     Indication: PNEUMONIA
     Dosage: UNK
     Dates: start: 201909, end: 201909
  14. URSODIOL. [Concomitant]
     Active Substance: URSODIOL
  15. ALBUTEROL [SALBUTAMOL] [Concomitant]
     Active Substance: ALBUTEROL
  16. RANITIDINE. [Concomitant]
     Active Substance: RANITIDINE
  17. CITALOPRAM [Suspect]
     Active Substance: CITALOPRAM HYDROBROMIDE
     Indication: PNEUMONIA
     Dosage: UNK
     Route: 065
     Dates: start: 201909, end: 201909
  18. DOCUSATE [Concomitant]
     Active Substance: DOCUSATE
  19. MEPHYTON [Concomitant]
     Active Substance: PHYTONADIONE
  20. TRAMADOL. [Suspect]
     Active Substance: TRAMADOL
     Indication: PNEUMONIA
     Dosage: UNK
     Route: 065
     Dates: start: 201909, end: 201909
  21. VITAMIN E [Concomitant]
     Active Substance: .ALPHA.-TOCOPHEROL
  22. PULMOZYME [Concomitant]
     Active Substance: DORNASE ALFA

REACTIONS (2)
  - Pneumonia [Recovered/Resolved]
  - Serotonin syndrome [Recovered/Resolved]

NARRATIVE: CASE EVENT DATE: 20190923
